FAERS Safety Report 7476869-3 (Version None)
Quarter: 2011Q2

REPORT INFORMATION
  Report Type: 
  Country: None (occurrence: None)
  Receive Date: 20110512
  Receipt Date: 20081130
  Transmission Date: 20111010
  Serious: Yes (Death, Hospitalization, Other)
  Sender: FDA-Public Use
  Company Number: US-BAYER-200839670NA

PATIENT
  Age: 63 Year
  Sex: Female
  Weight: 108.84 kg

DRUGS (16)
  1. ZOCOR [Concomitant]
     Route: 048
  2. FRESH FROZEN PLASMA [Concomitant]
     Dosage: 16 U, UNK
     Route: 042
     Dates: start: 20070823, end: 20070823
  3. PLATELETS [Concomitant]
     Dosage: 10 PACKS
     Route: 042
     Dates: start: 20070826, end: 20070826
  4. TRASYLOL [Suspect]
     Indication: AORTIC VALVE REPLACEMENT
     Dosage: 1 ML, INITIAL DOSE
     Route: 042
     Dates: start: 20070823, end: 20070823
  5. PLAVIX [Concomitant]
     Dosage: 75 MG, QD
     Route: 048
     Dates: start: 20060327
  6. ACETYLSALICYLIC ACID SRT [Concomitant]
  7. ANCEF [Concomitant]
     Dosage: 2 G, UNK
     Route: 042
     Dates: start: 20070823, end: 20070823
  8. RED BLOOD CELLS, CONCENTRATED [Concomitant]
     Dosage: 11 U, UNK
     Route: 042
     Dates: start: 20070823, end: 20070823
  9. TRANDOLAPRIL [Concomitant]
     Dosage: 4 MG, QD
     Route: 048
     Dates: start: 20070416
  10. MANNITOL [Concomitant]
     Dosage: 150 MG, UNK
     Dates: start: 20070823, end: 20070823
  11. LIPITOR [Concomitant]
     Dosage: 10 MG, QD
     Route: 048
     Dates: start: 20070416
  12. HEPARIN [Concomitant]
     Dosage: 63000 U, UNK
     Dates: start: 20070823, end: 20070823
  13. TRASYLOL [Suspect]
     Indication: AORTIC ANEURYSM REPAIR
     Dosage: 200 ML LOADING DOSE
     Route: 042
     Dates: start: 20070823, end: 20070823
  14. TRASYLOL [Suspect]
     Dosage: 50 ML/HOUR INFUSION
     Route: 042
     Dates: start: 20070823, end: 20070823
  15. SYNTHROID [Concomitant]
     Dosage: UNK
     Route: 048
     Dates: start: 20060327
  16. PLATELETS [Concomitant]
     Dosage: 26 PACKS
     Route: 042
     Dates: start: 20070823, end: 20070823

REACTIONS (17)
  - RESPIRATORY FAILURE [None]
  - ANXIETY [None]
  - FEAR [None]
  - PAIN [None]
  - MYOCARDIAL INFARCTION [None]
  - METABOLIC ACIDOSIS [None]
  - EMOTIONAL DISTRESS [None]
  - STRESS [None]
  - DEATH [None]
  - RENAL FAILURE [None]
  - RENAL IMPAIRMENT [None]
  - INJURY [None]
  - UNEVALUABLE EVENT [None]
  - RENAL FAILURE ACUTE [None]
  - RENAL INJURY [None]
  - HEPATIC FAILURE [None]
  - MULTI-ORGAN FAILURE [None]
